FAERS Safety Report 4633970-7 (Version None)
Quarter: 2005Q2

REPORT INFORMATION
  Report Type: 
  Country: None (occurrence: None)
  Receive Date: 20050407
  Receipt Date: 20050328
  Transmission Date: 20051028
  Serious: Yes (Hospitalization)
  Sender: FDA-Public Use
  Company Number: 05P-163-0295459-00

PATIENT
  Age: 41 Year
  Sex: Female
  Weight: 144.5 kg

DRUGS (15)
  1. VICODIN ES [Suspect]
     Dosage: 2 TABLET, ONCE DAILY AS NEEDED, PER ORAL
     Route: 048
  2. INTERFERON ALFA-2B RECOMBINANT [Suspect]
     Indication: MALIGNANT MELANOMA
     Dates: end: 20050301
  3. OXYCOCET [Suspect]
  4. TEMAZEPAM [Concomitant]
  5. TRAZODONE HCL [Concomitant]
  6. POTASSIUM CHLORIDE [Concomitant]
  7. FUROSEMIDE [Concomitant]
  8. PHRENILIN [Concomitant]
  9. LOMOTIL [Concomitant]
  10. RANITIDINE HYDROCHLORIDE [Concomitant]
  11. IBUPROFEN [Concomitant]
  12. MULTI-VITAMINS [Concomitant]
  13. MEDROXYPROGESTERONE ACETATE [Concomitant]
  14. DARVOCET [Concomitant]
  15. PHENTERMINE [Concomitant]

REACTIONS (4)
  - ABDOMINAL PAIN [None]
  - CONSTIPATION [None]
  - HEADACHE [None]
  - PAIN [None]
